FAERS Safety Report 19154956 (Version 2)
Quarter: 2021Q2

REPORT INFORMATION
  Report Type: Spontaneous
  Country: AU (occurrence: AU)
  Receive Date: 20210419
  Receipt Date: 20210423
  Transmission Date: 20210717
  Serious: Yes (Other)
  Sender: FDA-Public Use
  Company Number: NVSC2021AU085622

PATIENT
  Age: 4 Year
  Sex: Female

DRUGS (3)
  1. TEMSIROLIMUS. [Suspect]
     Active Substance: TEMSIROLIMUS
     Indication: RHABDOMYOSARCOMA RECURRENT
     Dosage: UNK
     Route: 065
  2. VINORELBINE [Suspect]
     Active Substance: VINORELBINE TARTRATE
     Indication: RHABDOMYOSARCOMA RECURRENT
     Dosage: UNK
     Route: 065
     Dates: start: 201907
  3. CYCLOPHOSPHAMIDE. [Suspect]
     Active Substance: CYCLOPHOSPHAMIDE
     Indication: RHABDOMYOSARCOMA RECURRENT
     Dosage: UNK
     Route: 065

REACTIONS (1)
  - Rhabdomyosarcoma recurrent [Unknown]

NARRATIVE: CASE EVENT DATE: 202001
